FAERS Safety Report 6943016-3 (Version None)
Quarter: 2010Q3

REPORT INFORMATION
  Report Type: 
  Country: None (occurrence: None)
  Receive Date: 20100825
  Receipt Date: 20100825
  Transmission Date: 20110219
  Serious: Yes (Other)
  Sender: FDA-Public Use
  Company Number: None

PATIENT
  Age: 28 Year
  Sex: Female
  Weight: 99.7913 kg

DRUGS (3)
  1. VENLAFAXINE [Suspect]
     Indication: ANXIETY
     Dosage: 150MG ONCE A DAY PO
     Route: 048
     Dates: start: 20100713, end: 20100809
  2. VENLAFAXINE [Suspect]
     Indication: DEPRESSION
     Dosage: 150MG ONCE A DAY PO
     Route: 048
     Dates: start: 20100713, end: 20100809
  3. VENLAFAXINE [Suspect]
     Indication: POST-TRAUMATIC STRESS DISORDER
     Dosage: 150MG ONCE A DAY PO
     Route: 048
     Dates: start: 20100713, end: 20100809

REACTIONS (8)
  - AGITATION [None]
  - ANXIETY [None]
  - CONDITION AGGRAVATED [None]
  - DEPRESSION [None]
  - DIZZINESS [None]
  - HYPERHIDROSIS [None]
  - PRODUCT SUBSTITUTION ISSUE [None]
  - UNEVALUABLE EVENT [None]
